FAERS Safety Report 5855281-4 (Version None)
Quarter: 2008Q3

REPORT INFORMATION
  Report Type: 
  Country: None (occurrence: None)
  Receive Date: 20080822
  Receipt Date: 20041102
  Transmission Date: 20090109
  Serious: No
  Sender: FDA-Public Use
  Company Number: US-ABBOTT-08P-163-0466513-00

PATIENT
  Age: 80 Year
  Sex: Female

DRUGS (1)
  1. LEVOTHYROXINE SODIUM [Suspect]
     Indication: DRUG USE FOR UNKNOWN INDICATION
     Dosage: ^LOW DOSAGE^

REACTIONS (4)
  - ABDOMINAL DISTENSION [None]
  - ALOPECIA [None]
  - EYE SWELLING [None]
  - JOINT SWELLING [None]
